FAERS Safety Report 17380331 (Version 1)
Quarter: 2020Q1

REPORT INFORMATION
  Report Type: Report from Study
  Country: EG (occurrence: EG)
  Receive Date: 20200206
  Receipt Date: 20200206
  Transmission Date: 20200409
  Serious: Yes (Death, Hospitalization, Other)
  Sender: FDA-Public Use
  Company Number: NVSC2020EG028194

PATIENT
  Age: 57 Year
  Sex: Male

DRUGS (1)
  1. GLIVEC [Suspect]
     Active Substance: IMATINIB MESYLATE
     Indication: COLON CANCER
     Dosage: 1 DF, QD
     Route: 065
     Dates: start: 20180901, end: 20181231

REACTIONS (7)
  - Bone marrow failure [Fatal]
  - Pruritus [Recovered/Resolved]
  - White blood cell count decreased [Fatal]
  - Haemoglobin decreased [Fatal]
  - Immunodeficiency [Fatal]
  - Platelet count decreased [Fatal]
  - Product use in unapproved indication [Unknown]

NARRATIVE: CASE EVENT DATE: 201810
